FAERS Safety Report 15277486 (Version 1)
Quarter: 2018Q3

REPORT INFORMATION
  Report Type: Spontaneous
  Country: US (occurrence: US)
  Receive Date: 20180730
  Receipt Date: 20180730
  Transmission Date: 20181010
  Serious: No
  Sender: FDA-Public Use
  Company Number: None

PATIENT
  Age: 71 Year
  Sex: Female
  Weight: 76.5 kg

DRUGS (5)
  1. PRAVASTATIN. [Concomitant]
     Active Substance: PRAVASTATIN
  2. OFLOXACIN. [Suspect]
     Active Substance: OFLOXACIN
     Indication: CELLULITIS ORBITAL
     Dosage: ?          QUANTITY:2 DROP(S);?
     Route: 047
     Dates: start: 20180727, end: 20180727
  3. LOSARTAN. [Concomitant]
     Active Substance: LOSARTAN
  4. DILTIAZEM. [Concomitant]
     Active Substance: DILTIAZEM
  5. COUMADIN [Concomitant]
     Active Substance: WARFARIN SODIUM

REACTIONS (1)
  - Rash [None]

NARRATIVE: CASE EVENT DATE: 20180727
